FAERS Safety Report 7212022-6 (Version None)
Quarter: 2011Q1

REPORT INFORMATION
  Report Type: 
  Country: None (occurrence: None)
  Receive Date: 20110106
  Receipt Date: 20101228
  Transmission Date: 20110831
  Serious: Yes (Other)
  Sender: FDA-Public Use
  Company Number: BR-AMGEN-BRASP2010008652

PATIENT

DRUGS (7)
  1. METHOTREXATE [Concomitant]
     Dosage: EVERY 15 DAYS
  2. CHLOROQUINE HYDROCHLORIDE [Concomitant]
     Dosage: 250 MG, 1X/DAY
  3. DIPIRONA [Concomitant]
     Dosage: UNK
  4. PREDNISONE [Concomitant]
     Indication: PAIN
     Dosage: 5 MG, AS NEEDED
  5. IBUPROFEN [Concomitant]
     Indication: PAIN
     Dosage: 300 MG, AS NEEDED
  6. ENBREL [Suspect]
     Indication: RHEUMATOID ARTHRITIS
     Dosage: 25MG TWICE WEEKLY
     Route: 058
     Dates: start: 20100801
  7. FOLIC ACID [Concomitant]
     Dosage: UNK

REACTIONS (5)
  - HAEMORRHAGE [None]
  - INJECTION SITE PRURITUS [None]
  - INJECTION SITE ERYTHEMA [None]
  - MENSTRUATION DELAYED [None]
  - INJECTION SITE SWELLING [None]
